FAERS Safety Report 5628068-5 (Version None)
Quarter: 2008Q1

REPORT INFORMATION
  Report Type: 
  Country: None (occurrence: None)
  Receive Date: 20080215
  Receipt Date: 20080206
  Transmission Date: 20080703
  Serious: Yes (Other)
  Sender: FDA-Public Use
  Company Number: JP-AMGEN-US263587

PATIENT
  Age: 75 Year
  Sex: Male

DRUGS (5)
  1. ENBREL [Suspect]
     Indication: RHEUMATOID ARTHRITIS
     Route: 058
     Dates: start: 20071031, end: 20080117
  2. GLUCOCORTICOIDS [Concomitant]
  3. ISCOTIN [Concomitant]
     Dosage: UNKNOWN
     Route: 048
  4. RIMATIL [Concomitant]
     Dosage: UNKNOWN
     Route: 048
  5. LOXONIN [Concomitant]
     Dosage: UNKNOWN
     Route: 048

REACTIONS (1)
  - LUNG NEOPLASM MALIGNANT [None]
